FAERS Safety Report 24204243 (Version 4)
Quarter: 2025Q1

REPORT INFORMATION
  Report Type: Spontaneous
  Country: US (occurrence: US)
  Receive Date: 20240813
  Receipt Date: 20250327
  Transmission Date: 20250409
  Serious: No
  Sender: Unknown Manufacturer
  Company Number: US-862174955-ML2024-04381

PATIENT
  Age: 80 Year
  Sex: Female

DRUGS (2)
  1. TRAVOPROST [Suspect]
     Active Substance: TRAVOPROST
     Indication: Glaucoma
     Route: 047
  2. TRAVOPROST [Suspect]
     Active Substance: TRAVOPROST
     Route: 047

REACTIONS (4)
  - Malaise [Unknown]
  - Illness [Unknown]
  - Product packaging quantity issue [Unknown]
  - Product dose omission issue [Unknown]

NARRATIVE: CASE EVENT DATE: 20240101
